FAERS Safety Report 11592665 (Version 1)
Quarter: 2015Q4

REPORT INFORMATION
  Report Type: Spontaneous
  Country: US (occurrence: None)
  Receive Date: 20151002
  Receipt Date: 20151002
  Transmission Date: 20160304
  Serious: Yes (Death)
  Sender: FDA-Public Use
  Company Number: None

PATIENT
  Age: 43 Year
  Sex: Female
  Weight: 112 kg

DRUGS (9)
  1. FERAHEME [Suspect]
     Active Substance: FERUMOXYTOL NON-STOICHIOMETRIC MAGNETITE
     Indication: IRON DEFICIENCY ANAEMIA
     Dosage: 510MG/17ML WEEKLY X 2 DOSES INTRAVENOUS
     Route: 042
     Dates: start: 20150929, end: 20150929
  2. FERROUS SULFATE [Concomitant]
     Active Substance: FERROUS SULFATE\FERROUS SULFATE, DRIED
  3. CYCLOBENZAPRINE [Concomitant]
     Active Substance: CYCLOBENZAPRINE
  4. QUETIAPINE [Concomitant]
     Active Substance: QUETIAPINE
  5. OMEPRAZOLE. [Concomitant]
     Active Substance: OMEPRAZOLE
  6. LAMOTRAGINE [Concomitant]
     Active Substance: LAMOTRIGINE
  7. AMITRIPTYLINE [Concomitant]
     Active Substance: AMITRIPTYLINE
  8. NAPROXEN. [Concomitant]
     Active Substance: NAPROXEN
  9. CITALOPRAM [Concomitant]
     Active Substance: CITALOPRAM HYDROBROMIDE

REACTIONS (8)
  - Eye movement disorder [None]
  - Vomiting [None]
  - Nausea [None]
  - Erythema [None]
  - Posture abnormal [None]
  - Pulse absent [None]
  - Protrusion tongue [None]
  - Infusion related reaction [None]

NARRATIVE: CASE EVENT DATE: 20150929
